FAERS Safety Report 8553164-2 (Version None)
Quarter: 2012Q3

REPORT INFORMATION
  Report Type: 
  Country: None (occurrence: None)
  Receive Date: 20120731
  Receipt Date: 20120725
  Transmission Date: 20120928
  Serious: Yes (Other)
  Sender: FDA-Public Use
  Company Number: US-PFIZER INC-2012180658

PATIENT
  Sex: Female
  Weight: 54.422 kg

DRUGS (3)
  1. CRESTOR [Concomitant]
     Indication: BLOOD CHOLESTEROL ABNORMAL
     Dosage: 10 MG, 2X/WEEK
  2. VORICONAZOLE [Suspect]
     Indication: EYE INFECTION FUNGAL
     Dosage: 200 MG,DAILY
     Dates: start: 20111206, end: 20120103
  3. ZETIA [Concomitant]
     Indication: BLOOD CHOLESTEROL ABNORMAL
     Dosage: 10 MG,DAILY

REACTIONS (4)
  - PAIN IN EXTREMITY [None]
  - EYE INFECTION FUNGAL [None]
  - EYE DISORDER [None]
  - BACK PAIN [None]
